FAERS Safety Report 5463663-8 (Version None)
Quarter: 2007Q3

REPORT INFORMATION
  Report Type: 
  Country: None (occurrence: None)
  Receive Date: 20070919
  Receipt Date: 20070907
  Transmission Date: 20080115
  Serious: Yes (Other)
  Sender: FDA-Public Use
  Company Number: 236966K07USA

PATIENT
  Age: 65 Year
  Sex: Female
  Weight: 62.5964 kg

DRUGS (6)
  1. REBIF [Suspect]
     Indication: MULTIPLE SCLEROSIS
     Dosage: 44 MCG, 3 IN 1 WEEKS, SUBCUTANEOUS
     Route: 058
     Dates: start: 20070516
  2. SYNTHROID [Concomitant]
  3. TRICOR [Concomitant]
  4. FENTANYL PATCH (FENTANYL) [Concomitant]
  5. UNSPECIFIED MEDICATION (ALL OTHER THERAPEUTIC PRODUCTS) [Concomitant]
  6. GLUCOSAMINE CHONDROITIN (GLUCOSAMINE W/ CHONDROITIN) [Concomitant]

REACTIONS (4)
  - LOSS OF CONSCIOUSNESS [None]
  - NAUSEA [None]
  - SPINAL HAEMANGIOMA [None]
  - VISION BLURRED [None]
